FAERS Safety Report 7462860-X (Version None)
Quarter: 2011Q2

REPORT INFORMATION
  Report Type: 
  Country: None (occurrence: None)
  Receive Date: 20110506
  Receipt Date: 20110113
  Transmission Date: 20111010
  Serious: Yes (Other)
  Sender: FDA-Public Use
  Company Number: US-BAYER-201018260NA

PATIENT
  Sex: Female
  Weight: 73 kg

DRUGS (21)
  1. YASMIN [Suspect]
     Indication: ACNE
  2. BYTORIN [Concomitant]
  3. DOC-Q-LACE [Concomitant]
  4. NEXIUM [Concomitant]
     Indication: IRRITABLE BOWEL SYNDROME
     Dosage: UNK
     Dates: start: 20020101
  5. METOCLOPRAMID [Concomitant]
  6. PROMETHAZINE HYDROCHLORIDE [Concomitant]
  7. CYCLOBENZAPRINE HYDROCHLORIDE [Concomitant]
  8. YAZ [Suspect]
     Indication: PRODUCT USED FOR UNKNOWN INDICATION
     Route: 048
     Dates: start: 20070201, end: 20070901
  9. YASMIN [Suspect]
     Indication: ORAL CONTRACEPTION
     Dosage: UNK UNK, QD
     Route: 048
     Dates: start: 20000101, end: 20050101
  10. LIPITOR [Concomitant]
     Dosage: UNK
     Dates: start: 20000101
  11. COLACE [Concomitant]
  12. TOPAMAX [Concomitant]
  13. EFFEXOR XR [Concomitant]
     Indication: MIGRAINE
     Dosage: UNK
     Dates: start: 20000101
  14. GAS-X [Concomitant]
  15. ALBUTEROL [Concomitant]
  16. LORAZEPAM [Concomitant]
  17. EFFEXOR XR [Concomitant]
     Indication: DEPRESSION
  18. ASCORBIC ACID [Concomitant]
     Dosage: UNK
     Dates: start: 20000101
  19. EFFEXOR [Concomitant]
  20. OXYCODONE AND ACETAMINOPHEN [Concomitant]
  21. ACETAMINOPHEN AND HYDROCODONE BITARTRATE [Concomitant]

REACTIONS (9)
  - CHOLECYSTITIS [None]
  - CHOLELITHIASIS [None]
  - PANCREATITIS [None]
  - ABDOMINAL PAIN [None]
  - GALLBLADDER DISORDER [None]
  - ABDOMINAL PAIN UPPER [None]
  - PAIN [None]
  - LIPASE INCREASED [None]
  - DEEP VEIN THROMBOSIS [None]
